FAERS Safety Report 4830178-7 (Version None)
Quarter: 2005Q4

REPORT INFORMATION
  Report Type: 
  Country: None (occurrence: None)
  Receive Date: 20051115
  Receipt Date: 20051115
  Transmission Date: 20060501
  Serious: No
  Sender: FDA-Public Use
  Company Number: None

PATIENT
  Age: 18 Year
  Sex: Female

DRUGS (1)
  1. PPD [Suspect]
     Route: 030
     Dates: start: 20051014

REACTIONS (4)
  - DEPRESSED LEVEL OF CONSCIOUSNESS [None]
  - MUSCULOSKELETAL STIFFNESS [None]
  - SYNCOPE [None]
  - TREMOR [None]
